FAERS Safety Report 10730998 (Version 1)
Quarter: 2015Q1

REPORT INFORMATION
  Report Type: Spontaneous
  Country: US (occurrence: US)
  Receive Date: 20150122
  Receipt Date: 20150122
  Transmission Date: 20150721
  Serious: No
  Sender: FDA-Public Use
  Company Number: US-PFIZER INC-2015019129

PATIENT
  Age: 36 Year
  Sex: Female

DRUGS (1)
  1. XALKORI [Suspect]
     Active Substance: CRIZOTINIB
     Indication: LUNG NEOPLASM MALIGNANT
     Dosage: 250 MG, 2X/DAY
     Dates: start: 201406

REACTIONS (5)
  - Photophobia [Unknown]
  - Abdominal discomfort [Unknown]
  - Nausea [Unknown]
  - Upper-airway cough syndrome [Unknown]
  - Insomnia [Unknown]
